FAERS Safety Report 7502974-9 (Version None)
Quarter: 2011Q2

REPORT INFORMATION
  Report Type: 
  Country: None (occurrence: None)
  Receive Date: 20110525
  Receipt Date: 20100915
  Transmission Date: 20111010
  Serious: No
  Sender: FDA-Public Use
  Company Number: US-NOVEN-ALL1-2010-04904

PATIENT
  Sex: Female
  Weight: 86.168 kg

DRUGS (2)
  1. DAYTRANA [Suspect]
     Dosage: UNK MG,(A CORNER OF A 10MG PATCH) 1X/DAY:QD
     Route: 062
     Dates: start: 20100915, end: 20100915
  2. PAROXETINE HCL [Concomitant]
     Dosage: 10 MG, 1X/DAY:QD
     Route: 048

REACTIONS (2)
  - MEDICATION ERROR [None]
  - PRODUCT QUALITY ISSUE [None]
